FAERS Safety Report 17163588 (Version 13)
Quarter: 2021Q3

REPORT INFORMATION
  Report Type: Report from Study
  Country: JP (occurrence: JP)
  Receive Date: 20191217
  Receipt Date: 20210902
  Transmission Date: 20211014
  Serious: Yes (Life-Threatening)
  Sender: FDA-Public Use
  Company Number: JP-ROCHE-2499161

PATIENT
  Age: 68 Year
  Sex: Male
  Weight: 71.2 kg

DRUGS (34)
  1. ATEZOLIZUMAB. [Suspect]
     Active Substance: ATEZOLIZUMAB
     Indication: NON-SMALL CELL LUNG CANCER
     Dosage: MOST RECENT DOSE DATE: 25/NOV/2019
     Route: 042
     Dates: start: 20191125
  2. D MANNITOL [Concomitant]
     Dates: start: 20191125, end: 20191125
  3. ACETAMINOPHEN. [Concomitant]
     Active Substance: ACETAMINOPHEN
     Indication: PYREXIA
     Dates: start: 20191104, end: 20191206
  4. LACTEC D [Concomitant]
     Indication: NAUSEA
     Dates: start: 20191130, end: 20191206
  5. SANDOSTATIN [Concomitant]
     Active Substance: OCTREOTIDE ACETATE
     Indication: DUODENAL ULCER HAEMORRHAGE
     Route: 058
     Dates: start: 20191213, end: 20200127
  6. PEMETREXED. [Suspect]
     Active Substance: PEMETREXED
     Indication: NON-SMALL CELL LUNG CANCER
     Dosage: DATE OF MOST RECENT DOSE OF PREMETREXED PRIOR TO SAE ONSET: 25/NOV/2019
     Route: 042
     Dates: start: 20191125
  7. APREPITANT. [Concomitant]
     Active Substance: APREPITANT
     Dates: start: 20191125, end: 20191127
  8. FAMOTIDINE. [Concomitant]
     Active Substance: FAMOTIDINE
     Dates: start: 20191125, end: 20191125
  9. MAGNESIUM SULFATE. [Concomitant]
     Active Substance: MAGNESIUM SULFATE
     Dates: start: 20191125, end: 20191125
  10. METOCLOPRAMIDE. [Concomitant]
     Active Substance: METOCLOPRAMIDE
     Indication: NAUSEA
  11. SENNOSIDE A+B [Concomitant]
     Active Substance: SENNOSIDES A AND B
     Indication: CONSTIPATION
     Dates: start: 20191203, end: 20191204
  12. LASIX [Concomitant]
     Active Substance: FUROSEMIDE
     Indication: DUODENAL ULCER HAEMORRHAGE
     Dates: start: 20191210, end: 20191212
  13. LACTEC D [Concomitant]
     Indication: DECREASED APPETITE
  14. ESOMEPRAZOLE MAGNESIUM DIHYDRATE [Concomitant]
     Active Substance: ESOMEPRAZOLE MAGNESIUM
     Indication: GASTRITIS
     Dates: start: 20191202, end: 20191206
  15. MEROPENEM. [Concomitant]
     Active Substance: MEROPENEM
     Dates: start: 20191208, end: 20200402
  16. ZOLPIDEM TARTRATE. [Concomitant]
     Active Substance: ZOLPIDEM TARTRATE
     Indication: INSOMNIA
     Dates: start: 20191203, end: 20191203
  17. CISPLATIN. [Suspect]
     Active Substance: CISPLATIN
     Indication: NON-SMALL CELL LUNG CANCER
     Dosage: DATE OF MOST RECENT DOSE OF CISPLATIN PRIOR TO SAE ONSET: 25/NOV/2019
     Route: 042
     Dates: start: 20191125
  18. SOLITA?T1 [Concomitant]
     Dates: start: 20191125, end: 20191125
  19. METOCLOPRAMIDE. [Concomitant]
     Active Substance: METOCLOPRAMIDE
     Indication: DECREASED APPETITE
  20. TAZOPIPE [Concomitant]
     Active Substance: PIPERACILLIN SODIUM\TAZOBACTAM SODIUM
     Indication: PYREXIA
     Dates: start: 20191205, end: 20191208
  21. OMEPRAZOLE SODIUM [Concomitant]
     Active Substance: OMEPRAZOLE SODIUM
     Indication: DUODENAL ULCER HAEMORRHAGE
     Dates: start: 20191207, end: 20200326
  22. VANCOMYCIN HYDROCHLORIDE. [Concomitant]
     Active Substance: VANCOMYCIN HYDROCHLORIDE
     Indication: DUODENAL ULCER HAEMORRHAGE
     Dates: start: 20191213, end: 20200127
  23. METOCLOPRAMIDE. [Concomitant]
     Active Substance: METOCLOPRAMIDE
     Indication: HICCUPS
     Dates: start: 20191128, end: 20191201
  24. OLANZAPINE. [Concomitant]
     Active Substance: OLANZAPINE
     Indication: NAUSEA
     Dates: start: 20191129, end: 20191206
  25. ACELIO [Concomitant]
     Active Substance: ACETAMINOPHEN
     Indication: PYREXIA
     Route: 042
     Dates: start: 20191206, end: 20191211
  26. ADONA (JAPAN) [Concomitant]
     Indication: DUODENAL ULCER HAEMORRHAGE
     Dates: start: 20191207, end: 20191228
  27. ERYTHROCYTES [Concomitant]
     Active Substance: HUMAN RED BLOOD CELL
     Indication: DUODENAL ULCER HAEMORRHAGE
     Dates: start: 20191207, end: 20191219
  28. PALONOSETRON HYDROCHLORIDE. [Concomitant]
     Active Substance: PALONOSETRON HYDROCHLORIDE
     Dates: start: 20191125, end: 20191125
  29. DOMPERIDONE [Concomitant]
     Active Substance: DOMPERIDONE
     Indication: NAUSEA
     Dates: start: 20191202, end: 20191202
  30. DEXAMETHASONE SODIUM PHOSPHATE. [Concomitant]
     Active Substance: DEXAMETHASONE SODIUM PHOSPHATE
     Route: 042
     Dates: start: 20191125, end: 20191125
  31. CRAVIT [Concomitant]
     Active Substance: LEVOFLOXACIN
     Indication: DUODENAL ULCER HAEMORRHAGE
     Dates: start: 20191213, end: 20191218
  32. DEXAMETHASONE. [Concomitant]
     Active Substance: DEXAMETHASONE
     Route: 048
     Dates: start: 20191126, end: 20191128
  33. KENKETU NONTHRON [Concomitant]
     Indication: DUODENAL ULCER HAEMORRHAGE
     Dates: start: 20191210, end: 20191227
  34. INTRALIPOS [Concomitant]
     Active Substance: SOYBEAN OIL
     Indication: DUODENAL ULCER HAEMORRHAGE
     Dates: start: 20191228, end: 20200204

REACTIONS (1)
  - Atrioventricular block complete [Recovered/Resolved]

NARRATIVE: CASE EVENT DATE: 20191209
